FAERS Safety Report 25447095 (Version 3)
Quarter: 2025Q3

REPORT INFORMATION
  Report Type: Spontaneous
  Country: US (occurrence: US)
  Receive Date: 20250617
  Receipt Date: 20250811
  Transmission Date: 20251020
  Serious: Yes (Hospitalization)
  Sender: SANOFI AVENTIS
  Company Number: US-SA-2025SA170300

PATIENT
  Age: 70 Year
  Sex: Male

DRUGS (1)
  1. KEVZARA [Suspect]
     Active Substance: SARILUMAB
     Indication: Red blood cell sedimentation rate increased
     Dosage: 200 MG, QOW
     Route: 058
     Dates: start: 202504

REACTIONS (5)
  - Cardiac disorder [Unknown]
  - Renal disorder [Unknown]
  - Pain in extremity [Unknown]
  - Nasal congestion [Unknown]
  - Product use in unapproved indication [Unknown]

NARRATIVE: CASE EVENT DATE: 20250101
